FAERS Safety Report 4388908-7 (Version None)
Quarter: 2004Q2

REPORT INFORMATION
  Report Type: 
  Country: None (occurrence: None)
  Receive Date: 20040628
  Receipt Date: 20040614
  Transmission Date: 20050107
  Serious: Yes (Hospitalization)
  Sender: FDA-Public Use
  Company Number: 04P-163-0263648-00

PATIENT
  Age: 60 Year
  Sex: Male
  Weight: 106.5953 kg

DRUGS (9)
  1. HUMIRA [Suspect]
     Indication: RHEUMATOID ARTHRITIS
     Dosage: 40 MG, SUBCUTANEOUS
     Route: 058
     Dates: start: 20030101, end: 20040514
  2. DONEPEZIL HCL [Concomitant]
  3. VENLAFAXINE HCL [Concomitant]
  4. FOLIC ACID [Concomitant]
  5. ATORVASTATIN CALCIUM [Concomitant]
  6. VICODIN [Concomitant]
  7. HYDROXYCHLOROQUINE PHOSPHATE [Concomitant]
  8. TRAZODONE HCL [Concomitant]
  9. COUMADIN [Concomitant]

REACTIONS (4)
  - ARTHROPATHY [None]
  - FALL [None]
  - HIP ARTHROPLASTY [None]
  - WOUND COMPLICATION [None]
